FAERS Safety Report 11808746 (Version 1)
Quarter: 2015Q4

REPORT INFORMATION
  Report Type: Spontaneous
  Country: US (occurrence: US)
  Receive Date: 20151207
  Receipt Date: 20151207
  Transmission Date: 20160305
  Serious: No
  Sender: FDA-Public Use
  Company Number: US-ROCHE-1584558

PATIENT
  Sex: Male

DRUGS (1)
  1. LUCENTIS [Suspect]
     Active Substance: RANIBIZUMAB
     Indication: RETINAL VEIN OCCLUSION
     Dosage: IN EYE
     Route: 050
     Dates: start: 20150304

REACTIONS (3)
  - Visual impairment [Unknown]
  - Visual field defect [Unknown]
  - Vision blurred [Unknown]
